FAERS Safety Report 6985575-0 (Version None)
Quarter: 2010Q3

REPORT INFORMATION
  Report Type: 
  Country: None (occurrence: None)
  Receive Date: 20100915
  Receipt Date: 20100907
  Transmission Date: 20110219
  Serious: Yes (Life-Threatening)
  Sender: FDA-Public Use
  Company Number: JP-MERCK-1001USA01342

PATIENT
  Age: 80 Year
  Sex: Male

DRUGS (3)
  1. PEPCID [Suspect]
     Route: 048
  2. ANCARON [Suspect]
     Route: 065
  3. AMIODARONA [Concomitant]
     Route: 065

REACTIONS (2)
  - LONG QT SYNDROME [None]
  - TORSADE DE POINTES [None]
